FAERS Safety Report 14702264 (Version 3)
Quarter: 2020Q3

REPORT INFORMATION
  Report Type: Report from Study
  Country: DE (occurrence: DE)
  Receive Date: 20180401
  Receipt Date: 20191202
  Transmission Date: 20201105
  Serious: Yes (Hospitalization, Other)
  Sender: FDA-Public Use
  Company Number: DE-SHIRE-DE201812131

PATIENT

DRUGS (6)
  1. VOLTAREN RESINAT [Concomitant]
     Active Substance: DICLOFENAC
     Indication: ARTHRALGIA
  2. ETORICOXIB. [Suspect]
     Active Substance: ETORICOXIB
     Indication: HAEMOPHILIC ARTHROPATHY
     Dosage: 90 MILLIGRAM, DAILY
     Route: 065
     Dates: start: 20110804, end: 20171128
  3. ETORICOXIB. [Suspect]
     Active Substance: ETORICOXIB
     Indication: ARTHRALGIA
  4. ARCOXIA [Concomitant]
     Active Substance: ETORICOXIB
     Indication: ARTHRALGIA
  5. ADVATE [Suspect]
     Active Substance: ANTIHEMOPHILIC FACTOR, HUMAN RECOMBINANT
     Indication: HAEMORRHAGE PROPHYLAXIS
     Dosage: 1500 IU, 1X/WEEK
     Route: 042
     Dates: start: 20110401, end: 20171127
  6. ADVATE [Suspect]
     Active Substance: ANTIHEMOPHILIC FACTOR, HUMAN RECOMBINANT
     Dosage: 1500 INTERNATIONAL UNIT, 1X/WEEK
     Route: 042
     Dates: start: 20110804

REACTIONS (8)
  - Contusion [Recovered/Resolved]
  - Face oedema [Recovered/Resolved]
  - Haemarthrosis [Recovered/Resolved]
  - Loss of consciousness [Recovered/Resolved]
  - Fall [Recovered/Resolved]
  - Rash [Recovered/Resolved]
  - Pruritus [Recovered/Resolved]
  - Epilepsy [Recovered/Resolved]

NARRATIVE: CASE EVENT DATE: 20171124
